FAERS Safety Report 6857269-3 (Version None)
Quarter: 2010Q3

REPORT INFORMATION
  Report Type: 
  Country: None (occurrence: None)
  Receive Date: 20100719
  Receipt Date: 20100713
  Transmission Date: 20110219
  Serious: Yes (Death)
  Sender: FDA-Public Use
  Company Number: JP-JNJFOC-20100704666

PATIENT
  Age: 49 Year
  Sex: Male

DRUGS (7)
  1. RISPERDAL CONSTA [Suspect]
     Indication: SCHIZOPHRENIA
     Route: 030
  2. LEMONAMIN [Concomitant]
     Route: 048
  3. RIVOTRIL [Concomitant]
     Route: 048
  4. VEGETAMIN-A [Concomitant]
     Route: 048
  5. VALPROATE SODIUM [Concomitant]
     Route: 048
  6. AKIRIDEN [Concomitant]
     Route: 048
  7. FLUNITRAZEPAM [Concomitant]
     Route: 065

REACTIONS (2)
  - INAPPROPRIATE SCHEDULE OF DRUG ADMINISTRATION [None]
  - MYOCARDIAL INFARCTION [None]
